FAERS Safety Report 13697152 (Version 1)
Quarter: 2017Q2

REPORT INFORMATION
  Report Type: Spontaneous
  Country: US (occurrence: US)
  Receive Date: 20170628
  Receipt Date: 20170628
  Transmission Date: 20170830
  Serious: Yes (Life-Threatening)
  Sender: FDA-Public Use
  Company Number: None

PATIENT
  Age: 79 Year
  Sex: Female
  Weight: 62.6 kg

DRUGS (2)
  1. TELMISARTAN. [Suspect]
     Active Substance: TELMISARTAN
     Indication: HYPERTENSION
     Route: 048
     Dates: start: 20170419, end: 20170514
  2. SUPPLEMENTS FROM LIFE EXTENSION [Concomitant]

REACTIONS (9)
  - Swelling [None]
  - Throat tightness [None]
  - Dyspnoea [None]
  - Breast swelling [None]
  - Vulvovaginal swelling [None]
  - Peripheral swelling [None]
  - Swelling face [None]
  - Joint swelling [None]
  - Swollen tongue [None]

NARRATIVE: CASE EVENT DATE: 20170504
